FAERS Safety Report 10482594 (Version 3)
Quarter: 2015Q1

REPORT INFORMATION
  Report Type: Report from Study
  Country: US (occurrence: US)
  Receive Date: 20140929
  Receipt Date: 20150102
  Transmission Date: 20150720
  Serious: Yes (Hospitalization, Other)
  Sender: FDA-Public Use
  Company Number: US-GILEAD-2014-0116060

PATIENT
  Sex: Male

DRUGS (2)
  1. ELVITEGRAVIR/EMTRICITABINE/TENOFOVIR DF/COBICISTAT [Suspect]
     Active Substance: COBICISTAT\ELVITEGRAVIR\EMTRICITABINE\TENOFOVIR
     Indication: HIV INFECTION
     Dosage: UNK
     Route: 065
     Dates: start: 20140327, end: 201410
  2. ELVITEGRAVIR/EMTRICITABINE/TENOFOVIR DF/COBICISTAT [Suspect]
     Active Substance: COBICISTAT\ELVITEGRAVIR\EMTRICITABINE\TENOFOVIR
     Dosage: UNK
     Route: 065
     Dates: start: 20141125

REACTIONS (5)
  - Infection [Recovered/Resolved]
  - Shigella infection [Recovered/Resolved]
  - Sepsis [Recovered/Resolved]
  - Bacteraemia [Recovered/Resolved]
  - Cellulitis [Recovered/Resolved]
